FAERS Safety Report 9201546 (Version 2)
Quarter: 2013Q2

REPORT INFORMATION
  Report Type: Report from Study
  Country: US (occurrence: US)
  Receive Date: 20130401
  Receipt Date: 20130529
  Transmission Date: 20140414
  Serious: Yes (Life-Threatening, Hospitalization, Other)
  Sender: FDA-Public Use
  Company Number: US-SHIRE-ALL1-2013-01849

PATIENT
  Age: 68 Year
  Sex: Female
  Weight: 82 kg

DRUGS (1)
  1. VELAGLUCERASE ALFA [Suspect]
     Indication: GAUCHER^S DISEASE
     Dosage: UNK, UNKNOWN
     Route: 041

REACTIONS (1)
  - Hepatocellular carcinoma [Not Recovered/Not Resolved]
